FAERS Safety Report 13263116 (Version 1)
Quarter: 2017Q1

REPORT INFORMATION
  Report Type: Spontaneous
  Country: US (occurrence: US)
  Receive Date: 20170223
  Receipt Date: 20170223
  Transmission Date: 20170428
  Serious: No
  Sender: FDA-Public Use
  Company Number: US-ASTRAZENECA-2017SE16066

PATIENT
  Age: 819 Month
  Sex: Female
  Weight: 108.4 kg

DRUGS (11)
  1. BYDUREON [Suspect]
     Active Substance: EXENATIDE
     Indication: TYPE 2 DIABETES MELLITUS
     Route: 058
  2. TRAMADOL. [Concomitant]
     Active Substance: TRAMADOL
     Dosage: 6, DAILY
  3. INSULIN [Concomitant]
     Active Substance: INSULIN NOS
  4. WARFARIN [Concomitant]
     Active Substance: WARFARIN
     Indication: COAGULOPATHY
  5. LOVASTATIN. [Concomitant]
     Active Substance: LOVASTATIN
     Dosage: DAILY
  6. MULTIVITAMIN [Concomitant]
     Active Substance: VITAMINS
  7. WARFARIN [Concomitant]
     Active Substance: WARFARIN
     Indication: PULMONARY EMBOLISM
  8. HYDROCHLOROTHIAZIDE. [Concomitant]
     Active Substance: HYDROCHLOROTHIAZIDE
     Indication: DIURETIC THERAPY
     Dosage: TWICE A WEEK
  9. CYMBALTA [Concomitant]
     Active Substance: DULOXETINE HYDROCHLORIDE
     Indication: POST-TRAUMATIC STRESS DISORDER
     Dosage: TWO TIMES A DAY
  10. VITAMIN D3 [Concomitant]
     Active Substance: CHOLECALCIFEROL
  11. B12 SHOT [Concomitant]
     Dosage: MONTHLY

REACTIONS (2)
  - Circumstance or information capable of leading to device use error [Not Recovered/Not Resolved]
  - Blood potassium decreased [Unknown]

NARRATIVE: CASE EVENT DATE: 201612
